FAERS Safety Report 25059846 (Version 4)
Quarter: 2025Q2

REPORT INFORMATION
  Report Type: Spontaneous
  Country: US (occurrence: US)
  Receive Date: 20250310
  Receipt Date: 20250514
  Transmission Date: 20250716
  Serious: Yes (Death, Hospitalization, Other)
  Sender: SANOFI AVENTIS
  Company Number: US-SA-2025SA069804

PATIENT
  Age: 89 Year
  Sex: Male

DRUGS (2)
  1. DUPIXENT [Suspect]
     Active Substance: DUPILUMAB
     Indication: Asthma
     Route: 065
     Dates: start: 202310, end: 202310
  2. DUPIXENT [Suspect]
     Active Substance: DUPILUMAB
     Dosage: 300 MG, QOW
     Route: 065
     Dates: start: 2023

REACTIONS (10)
  - Death [Fatal]
  - Hip surgery [Unknown]
  - Fall [Unknown]
  - Hospitalisation [Unknown]
  - Cardiac disorder [Unknown]
  - Liver disorder [Unknown]
  - Peripheral swelling [Unknown]
  - Urinary tract infection [Unknown]
  - Malaise [Unknown]
  - Condition aggravated [Unknown]
